FAERS Safety Report 6152475-8 (Version None)
Quarter: 2009Q2

REPORT INFORMATION
  Report Type: 
  Country: None (occurrence: None)
  Receive Date: 20090413
  Receipt Date: 20090402
  Transmission Date: 20091009
  Serious: Yes (Other)
  Sender: FDA-Public Use
  Company Number: PHHY2009BR12693

PATIENT
  Sex: Female
  Weight: 54 kg

DRUGS (3)
  1. METHERGINE [Suspect]
     Indication: HAEMORRHAGE
  2. METHERGINE [Suspect]
     Indication: UTERINE LEIOMYOMA
  3. DIANE [Concomitant]
     Indication: CYST
     Dosage: 35 MG, 6 TABLETS

REACTIONS (9)
  - CHILLS [None]
  - HEADACHE [None]
  - HYPERHIDROSIS [None]
  - HYPOTENSION [None]
  - MALAISE [None]
  - OEDEMA PERIPHERAL [None]
  - PAIN IN EXTREMITY [None]
  - PERIPHERAL COLDNESS [None]
  - VAGINAL HAEMORRHAGE [None]
